FAERS Safety Report 8625588-6 (Version None)
Quarter: 2012Q3

REPORT INFORMATION
  Report Type: 
  Country: None (occurrence: None)
  Receive Date: 20120827
  Receipt Date: 20120820
  Transmission Date: 20120928
  Serious: Yes (Other)
  Sender: FDA-Public Use
  Company Number: US-JNJFOC-20120809832

PATIENT
  Age: 92 Year
  Sex: Female
  Weight: 70.31 kg

DRUGS (6)
  1. LASIX [Concomitant]
     Route: 048
  2. ZAROXOLYN [Concomitant]
     Route: 048
  3. XARELTO [Suspect]
     Indication: PRODUCT USED FOR UNKNOWN INDICATION
     Route: 048
  4. LIPITOR [Concomitant]
     Route: 048
  5. ATENOLOL [Concomitant]
     Route: 048
  6. LEXAPRO [Concomitant]
     Route: 048

REACTIONS (2)
  - CEREBRAL HAEMORRHAGE [None]
  - FALL [None]
